FAERS Safety Report 10516845 (Version 2)
Quarter: 2014Q4

REPORT INFORMATION
  Report Type: Spontaneous
  Country: US (occurrence: US)
  Receive Date: 20141014
  Receipt Date: 20141120
  Transmission Date: 20150528
  Serious: Yes (Other)
  Sender: FDA-Public Use
  Company Number: US-BAYER-2014-151080

PATIENT
  Age: 28 Year
  Sex: Female
  Weight: 52.15 kg

DRUGS (1)
  1. MIRENA [Suspect]
     Active Substance: LEVONORGESTREL
     Indication: CONTRACEPTION
     Dosage: 20 MCG/DL, CONT
     Route: 015
     Dates: start: 20121024, end: 20140423

REACTIONS (11)
  - Back pain [None]
  - Post procedural discomfort [Not Recovered/Not Resolved]
  - Abdominal discomfort [None]
  - Injury [Not Recovered/Not Resolved]
  - Device issue [None]
  - Exercise tolerance decreased [None]
  - Embedded device [None]
  - Procedural pain [Not Recovered/Not Resolved]
  - Weight loss poor [None]
  - Emotional distress [None]
  - Abdominal pain [None]

NARRATIVE: CASE EVENT DATE: 201401
